FAERS Safety Report 22355892 (Version 2)
Quarter: 2023Q2

REPORT INFORMATION
  Report Type: Spontaneous
  Country: CA (occurrence: CA)
  Receive Date: 20230523
  Receipt Date: 20230609
  Transmission Date: 20230721
  Serious: Yes (Other)
  Sender: FDA-Public Use
  Company Number: CA-PFIZER INC-202300195839

PATIENT
  Age: 27 Year
  Sex: Female
  Weight: 52 kg

DRUGS (3)
  1. XELJANZ [Suspect]
     Active Substance: TOFACITINIB CITRATE
     Indication: Colitis ulcerative
     Dosage: 10 MG, 2X/DAY
     Route: 048
     Dates: start: 20230224, end: 2023
  2. XELJANZ [Suspect]
     Active Substance: TOFACITINIB CITRATE
     Dosage: 5 MG, 2X/DAY
     Route: 048
     Dates: start: 2023, end: 2023
  3. XELJANZ [Suspect]
     Active Substance: TOFACITINIB CITRATE
     Dosage: DOSE INCREASED, UNKOWN POSOLOGY
     Dates: start: 2023

REACTIONS (3)
  - Rectal haemorrhage [Unknown]
  - Haemoglobin decreased [Recovering/Resolving]
  - Condition aggravated [Not Recovered/Not Resolved]

NARRATIVE: CASE EVENT DATE: 20230101
